FAERS Safety Report 4806729-5 (Version None)
Quarter: 2005Q4

REPORT INFORMATION
  Report Type: 
  Country: None (occurrence: None)
  Receive Date: 20051019
  Receipt Date: 20051010
  Transmission Date: 20060501
  Serious: Yes (Hospitalization)
  Sender: FDA-Public Use
  Company Number: FRWYE035506OCT05

PATIENT
  Age: 44 Year
  Sex: Male

DRUGS (4)
  1. RAPAMUNE [Suspect]
     Indication: GRAFT VERSUS HOST DISEASE
     Dosage: 2 MG DDAILY ORAL; ORAL
     Route: 048
     Dates: start: 20050914, end: 20050928
  2. RAPAMUNE [Suspect]
     Indication: GRAFT VERSUS HOST DISEASE
     Dosage: 2 MG DDAILY ORAL; ORAL
     Route: 048
     Dates: start: 20051004, end: 20051005
  3. PROGRAF [Concomitant]
  4. CORTICOSTEROIDS (CORTICOSTEROIDS) [Concomitant]

REACTIONS (12)
  - ACUTE RESPIRATORY DISTRESS SYNDROME [None]
  - CHOLESTASIS [None]
  - CYTOLYTIC HEPATITIS [None]
  - DRUG LEVEL ABOVE THERAPEUTIC [None]
  - ELECTROENCEPHALOGRAM ABNORMAL [None]
  - HAEMOLYSIS [None]
  - HYPERTRIGLYCERIDAEMIA [None]
  - LABORATORY TEST ABNORMAL [None]
  - LABORATORY TEST INTERFERENCE [None]
  - PNEUMONIA ASPERGILLUS [None]
  - PNEUMONIA HERPES VIRAL [None]
  - PULMONARY ALVEOLAR HAEMORRHAGE [None]
